FAERS Safety Report 22195471 (Version 1)
Quarter: 2023Q2

REPORT INFORMATION
  Report Type: Spontaneous
  Country: US (occurrence: US)
  Receive Date: 20230411
  Receipt Date: 20230411
  Transmission Date: 20230722
  Serious: No
  Sender: FDA-Public Use
  Company Number: 22/02412

PATIENT

DRUGS (1)
  1. ETOMIDATE [Suspect]
     Active Substance: ETOMIDATE
     Indication: Sedation
     Dosage: 20 MILLIGRAM, ONCE A DAY,BUT THEY ENDED UP GIVING ENTIRE VIAL
     Route: 065
     Dates: start: 20220614

REACTIONS (1)
  - Drug ineffective [Unknown]

NARRATIVE: CASE EVENT DATE: 20220614
